FAERS Safety Report 8574125-3 (Version None)
Quarter: 2012Q3

REPORT INFORMATION
  Report Type: 
  Country: None (occurrence: None)
  Receive Date: 20120806
  Receipt Date: 20120801
  Transmission Date: 20120928
  Serious: Yes (Hospitalization, Other)
  Sender: FDA-Public Use
  Company Number: PHHY2012MA002356

PATIENT
  Age: 27 Year
  Sex: Male

DRUGS (1)
  1. MEFLOQUINE HYDROCHLORIDE [Suspect]
     Indication: MALARIA PROPHYLAXIS
     Dosage: 250 MG, QW

REACTIONS (14)
  - HEADACHE [None]
  - INSOMNIA [None]
  - DELIRIUM [None]
  - PERSECUTORY DELUSION [None]
  - SUICIDAL IDEATION [None]
  - DIZZINESS [None]
  - HALLUCINATION, AUDITORY [None]
  - EMOTIONAL DISORDER [None]
  - DEPRESSIVE SYMPTOM [None]
  - PSYCHOTIC DISORDER [None]
  - SOCIAL AVOIDANT BEHAVIOUR [None]
  - POISONING [None]
  - ANXIETY [None]
  - DEPRESSION [None]
